FAERS Safety Report 6676475-4 (Version None)
Quarter: 2010Q2

REPORT INFORMATION
  Report Type: 
  Country: None (occurrence: None)
  Receive Date: 20100412
  Receipt Date: 20100407
  Transmission Date: 20101027
  Serious: Yes (Death, Other)
  Sender: FDA-Public Use
  Company Number: PHHY2010US20501

PATIENT
  Sex: Male
  Weight: 65 kg

DRUGS (1)
  1. EXJADE [Suspect]
     Dosage: 1000 MG DAILY
     Route: 048
     Dates: start: 20100310

REACTIONS (7)
  - DEATH [None]
  - HAEMATOCRIT DECREASED [None]
  - HAEMOGLOBIN DECREASED [None]
  - MYELODYSPLASTIC SYNDROME TRANSFORMATION [None]
  - PLATELET COUNT DECREASED [None]
  - RED BLOOD CELL COUNT DECREASED [None]
  - WHITE BLOOD CELL COUNT INCREASED [None]
